FAERS Safety Report 13179338 (Version 1)
Quarter: 2017Q1

REPORT INFORMATION
  Report Type: Spontaneous
  Country: US (occurrence: US)
  Receive Date: 20170202
  Receipt Date: 20170202
  Transmission Date: 20170428
  Serious: Yes (Life-Threatening, Hospitalization)
  Sender: FDA-Public Use
  Company Number: US-SCIEGEN PHARMACEUTICALS INC-2017SCILIT00026

PATIENT
  Age: 34 Year
  Sex: Male

DRUGS (2)
  1. CARISOPRODOL TABLETS [Suspect]
     Active Substance: CARISOPRODOL
     Dosage: 350 MG, BID
  2. CARISOPRODOL TABLETS [Suspect]
     Active Substance: CARISOPRODOL
     Indication: PRODUCT USED FOR UNKNOWN INDICATION
     Dosage: 350 MG, QID
     Route: 048

REACTIONS (15)
  - Drug abuse [Unknown]
  - Overdose [Unknown]
  - Stress [Unknown]
  - Vomiting [Unknown]
  - Unresponsive to stimuli [Unknown]
  - Cyanosis [Recovering/Resolving]
  - Respiratory distress [Unknown]
  - Agitation [Unknown]
  - Seizure like phenomena [Recovered/Resolved]
  - Paranoia [Unknown]
  - Apraxia [Unknown]
  - Sinus tachycardia [Unknown]
  - Hypoxia [Recovering/Resolving]
  - Delusion [Unknown]
  - Muscle twitching [Recovered/Resolved]
